FAERS Safety Report 19388843 (Version 1)
Quarter: 2021Q2

REPORT INFORMATION
  Report Type: Spontaneous
  Country: US (occurrence: US)
  Receive Date: 20210607
  Receipt Date: 20210607
  Transmission Date: 20210717
  Serious: No
  Sender: FDA-Public Use
  Company Number: US-SA-2021SA188768

PATIENT
  Sex: Female

DRUGS (2)
  1. LANTUS [Suspect]
     Active Substance: INSULIN GLARGINE
     Dosage: UNK , QD (16 AND A HALF UNITS ONCE DAILY)
  2. APIDRA [Suspect]
     Active Substance: INSULIN GLULISINE
     Dosage: DOUBLE AND TRIPLE USE (INCREASING AMOUNT OF INSULIN )
     Route: 065

REACTIONS (5)
  - Product quality issue [Unknown]
  - Injection site scar [Unknown]
  - Intentional product use issue [Unknown]
  - Blood glucose increased [Recovered/Resolved]
  - Glycosylated haemoglobin decreased [Unknown]
